FAERS Safety Report 4492042-5 (Version None)
Quarter: 2004Q4

REPORT INFORMATION
  Report Type: 
  Country: None (occurrence: None)
  Receive Date: 20041101
  Receipt Date: 20041015
  Transmission Date: 20050328
  Serious: Yes (Hospitalization)
  Sender: FDA-Public Use
  Company Number: A02200403093

PATIENT
  Age: 69 Year
  Sex: Female

DRUGS (12)
  1. STILNOX - (ZOLPIDEM) - TABLET - 10 MG [Suspect]
     Indication: SLEEP DISORDER
     Route: 048
  2. POTASSIUM CHLORIDE [Suspect]
     Dosage: 600 MG QID/600 MG}QID
     Route: 048
  3. ATHYMIL (MIANSERIN HYDROCHLORIDE) TABLET 10 MG [Suspect]
     Dosage: 10 MG BID
     Route: 048
  4. MODAMIDE (AMILORIDE HYDROCHLORIDE) TABLET 5 MG [Suspect]
     Dosage: 5 MG OD
     Route: 048
  5. CLOPIXOL (HYDROCHLORIDE) (ZUCLOPENTHIXOL HYDROCHLORIDE) SOLUTION 2 PER [Suspect]
     Dosage: 3 GTT TID
     Route: 048
  6. THERALENE (ALIMEMAZINE TARTRATE) SOLUTION 40 MG/ML / SOLUTION - 40 MG/ [Suspect]
     Dosage: 5GTT OD / 10 GTT QD
     Route: 048
  7. LEXOMIL (BROMAZEPAM) TABLET 6 MG [Suspect]
     Dosage: 3 MG OD
     Route: 048
  8. ATENOLOL [Suspect]
     Dosage: 50 MG OD
     Route: 048
  9. VITABACT (PICLOXYDINE DIHYDROCHLORIDE) [Concomitant]
  10. TID [Concomitant]
  11. ACETAMINOPHEN [Concomitant]
  12. ATARAX [Concomitant]

REACTIONS (2)
  - ANGLE CLOSURE GLAUCOMA [None]
  - EYE REDNESS [None]
